FAERS Safety Report 12178256 (Version 1)
Quarter: 2016Q1

REPORT INFORMATION
  Report Type: Spontaneous
  Country: US (occurrence: US)
  Receive Date: 20160314
  Receipt Date: 20160314
  Transmission Date: 20160526
  Serious: No
  Sender: FDA-Public Use
  Company Number: US-SA-2015SA208859

PATIENT
  Sex: Male

DRUGS (2)
  1. TOUJEO [Suspect]
     Active Substance: INSULIN GLARGINE
     Indication: DIABETES MELLITUS
     Route: 065
  2. INSULIN BASAL [Concomitant]
     Active Substance: INSULIN NOS

REACTIONS (3)
  - Pruritus [Unknown]
  - Injection site reaction [Unknown]
  - Rash [Unknown]
